FAERS Safety Report 25881174 (Version 1)
Quarter: 2025Q4

REPORT INFORMATION
  Report Type: Spontaneous
  Country: GB (occurrence: GB)
  Receive Date: 20251004
  Receipt Date: 20251004
  Transmission Date: 20260118
  Serious: Yes (Other)
  Sender: JOHNSON AND JOHNSON
  Company Number: GB-MHRA-TPP12166256C11017375YC1758906512512

PATIENT
  Age: 69 Year
  Sex: Female
  Weight: 74 kg

DRUGS (8)
  1. XARELTO [Suspect]
     Active Substance: RIVAROXABAN
     Indication: Product used for unknown indication
     Dosage: 15 MG, QD
     Route: 048
     Dates: start: 20250813
  2. ATORVASTATIN [Concomitant]
     Active Substance: ATORVASTATIN
     Indication: Blood cholesterol
     Dosage: 1 DF
     Dates: start: 20240628
  3. EDOXABAN [Concomitant]
     Active Substance: EDOXABAN
     Indication: Anticoagulant therapy
     Dosage: 1 DF, QD
     Dates: start: 20240628
  4. ISOSORBIDE MONONITRATE [Concomitant]
     Active Substance: ISOSORBIDE MONONITRATE
     Indication: Ill-defined disorder
     Dosage: TAKE ONE TWICE DAILY
     Dates: start: 20240628
  5. RAMIPRIL [Concomitant]
     Active Substance: RAMIPRIL
     Indication: Ill-defined disorder
     Dosage: UNK
     Dates: start: 20240628
  6. SOTALOL [Concomitant]
     Active Substance: SOTALOL
     Indication: Ill-defined disorder
     Dosage: UNK
     Dates: start: 20240628
  7. NITROGLYCERIN [Concomitant]
     Active Substance: NITROGLYCERIN
     Indication: Ill-defined disorder
     Dosage: 1 DF
     Dates: start: 20240628
  8. APIXABAN [Concomitant]
     Active Substance: APIXABAN
     Indication: Ill-defined disorder
     Dosage: 1 DF, BID
     Dates: start: 20250926, end: 20250926

REACTIONS (2)
  - Dyspnoea [Unknown]
  - Abdominal discomfort [Recovered/Resolved]
